FAERS Safety Report 4949858-8 (Version None)
Quarter: 2006Q1

REPORT INFORMATION
  Report Type: 
  Country: None (occurrence: None)
  Receive Date: 20060313
  Receipt Date: 20060224
  Transmission Date: 20060701
  Serious: Yes (Other)
  Sender: FDA-Public Use
  Company Number: US170273

PATIENT
  Sex: Female

DRUGS (2)
  1. ENBREL [Suspect]
     Indication: RHEUMATOID ARTHRITIS
  2. METHOTREXATE [Concomitant]

REACTIONS (5)
  - DERMATITIS [None]
  - GRANULOMA [None]
  - RASH PAPULAR [None]
  - SKIN HYPERPIGMENTATION [None]
  - SKIN LESION [None]
